FAERS Safety Report 16238861 (Version 1)
Quarter: 2019Q2

REPORT INFORMATION
  Report Type: Spontaneous
  Country: US (occurrence: US)
  Receive Date: 20190424
  Receipt Date: 20190424
  Transmission Date: 20190711
  Serious: Yes (Life-Threatening, Other)
  Sender: FDA-Public Use
  Company Number: None

PATIENT
  Age: 47 Year
  Sex: Male
  Weight: 80.1 kg

DRUGS (2)
  1. AMLODIPINE BESYLATE. [Concomitant]
     Active Substance: AMLODIPINE BESYLATE
  2. LOSARTAN POTASSIUM TABLETS USP 100 MG [Suspect]
     Active Substance: LOSARTAN POTASSIUM
     Indication: HYPERTENSION
     Dosage: ?          QUANTITY:1 TABLET(S);?
     Route: 048

REACTIONS (11)
  - Drug hypersensitivity [None]
  - Recalled product administered [None]
  - Asthenia [None]
  - Suspected product tampering [None]
  - Fatigue [None]
  - Blood uric acid increased [None]
  - Gout [None]
  - Lung disorder [None]
  - Dyspnoea [None]
  - Chest discomfort [None]
  - Apparent death [None]

NARRATIVE: CASE EVENT DATE: 20190113
